FAERS Safety Report 5995800-0 (Version None)
Quarter: 2008Q4

REPORT INFORMATION
  Report Type: 
  Country: None (occurrence: None)
  Receive Date: 20081212
  Receipt Date: 20081202
  Transmission Date: 20090506
  Serious: Yes (Other)
  Sender: FDA-Public Use
  Company Number: NL-JNJFOC-20080103718

PATIENT
  Sex: Male

DRUGS (8)
  1. REMICADE [Suspect]
     Dosage: 20 INFUSIONS
     Route: 042
  2. REMICADE [Suspect]
     Dosage: 11 INFUSIONS
     Route: 042
  3. REMICADE [Suspect]
     Indication: CROHN'S DISEASE
     Dosage: 14 INFUSIONS
     Route: 042
  4. PREDNISONE [Concomitant]
  5. ASACOL [Concomitant]
  6. LANVIS [Concomitant]
  7. 5-AMINOSALICYLIC ACID [Concomitant]
  8. METHOTREXATE [Concomitant]

REACTIONS (1)
  - MALIGNANT MELANOMA [None]
